FAERS Safety Report 14639173 (Version 2)
Quarter: 2018Q2

REPORT INFORMATION
  Report Type: Spontaneous
  Country: US (occurrence: US)
  Receive Date: 20180315
  Receipt Date: 20180411
  Transmission Date: 20180711
  Serious: Yes (Other)
  Sender: FDA-Public Use
  Company Number: US-MALLINCKRODT-T201800976

PATIENT
  Age: 58 Year
  Sex: Female

DRUGS (2)
  1. HYDROCODONE/ACETAMINOPHEN [Suspect]
     Active Substance: ACETAMINOPHEN\HYDROCODONE
     Indication: PAIN
     Dosage: 7.5/325 MG, FOUR TIMES DAILY AS NEEDED
     Route: 048
  2. HYDROCODONE/ACETAMINOPHEN [Suspect]
     Active Substance: ACETAMINOPHEN\HYDROCODONE
     Dosage: 10/325 MG, FOUR TIMES DAILY AS NEEDED
     Route: 048

REACTIONS (8)
  - Blood pressure increased [Unknown]
  - Withdrawal syndrome [Unknown]
  - Drug dependence [Unknown]
  - Hyperhidrosis [Unknown]
  - Pharyngeal oedema [Unknown]
  - Lip swelling [Unknown]
  - Drug effect incomplete [Unknown]
  - Swelling face [Unknown]
